FAERS Safety Report 4532864-5 (Version None)
Quarter: 2004Q4

REPORT INFORMATION
  Report Type: 
  Country: None (occurrence: None)
  Receive Date: 20041221
  Receipt Date: 20041116
  Transmission Date: 20050328
  Serious: Yes (Other)
  Sender: FDA-Public Use
  Company Number: PHEH2004US12476

PATIENT
  Age: 22 Year
  Sex: Female
  Weight: 73 kg

DRUGS (9)
  1. ABILIFY [Concomitant]
     Dosage: 5 MG, QHS
  2. LEVAQUIN [Concomitant]
     Dosage: 750 MG, QD
  3. HYDROCODONE [Concomitant]
     Indication: COUGH
     Dosage: 10 ML, PRN
  4. FROVATRIPTAN [Concomitant]
     Indication: MIGRAINE
     Dosage: UNK MG, PRN
  5. SYNTHROID [Concomitant]
     Indication: HYPOTHYROIDISM
  6. CLOZARIL [Suspect]
     Indication: BIPOLAR DISORDER
     Dosage: 200 MG, QD
     Route: 048
     Dates: start: 20041001, end: 20041104
  7. PRILOSEC [Concomitant]
     Dosage: 40 MG, QD
  8. IMITREX ^CERENEX^ [Concomitant]
     Dosage: 25 MG, UNK
  9. SEROQUEL [Concomitant]
     Dosage: 200 MG, QHS

REACTIONS (14)
  - ABDOMINAL PAIN UPPER [None]
  - ALANINE AMINOTRANSFERASE INCREASED [None]
  - ASPARTATE AMINOTRANSFERASE INCREASED [None]
  - BLOOD ALKALINE PHOSPHATASE INCREASED [None]
  - CHOLECYSTECTOMY [None]
  - CHOLECYSTITIS ACUTE [None]
  - DIARRHOEA [None]
  - DRUG TOXICITY [None]
  - HEPATIC NECROSIS [None]
  - HEPATITIS [None]
  - INFLUENZA LIKE ILLNESS [None]
  - NAUSEA [None]
  - PYREXIA [None]
  - VOMITING [None]
